FAERS Safety Report 15366955 (Version 1)
Quarter: 2018Q3

REPORT INFORMATION
  Report Type: Spontaneous
  Country: US (occurrence: US)
  Receive Date: 20180831
  Receipt Date: 20180831
  Transmission Date: 20181010
  Serious: Yes (Hospitalization)
  Sender: FDA-Public Use
  Company Number: None

PATIENT
  Age: 84 Year
  Sex: Male
  Weight: 113.4 kg

DRUGS (15)
  1. AMOXICILLIN/CLAVULANATE [Suspect]
     Active Substance: AMOXICILLIN\CLAVULANATE POTASSIUM
     Indication: PROSTATITIS
     Dosage: ?          QUANTITY:1 TABLET;?
     Route: 048
     Dates: start: 20180709, end: 20180711
  2. LASIX  1 DAILY [Concomitant]
  3. SIMVASTATIN 20 MG 1 DAILY [Concomitant]
  4. ISOSORBIDE. [Concomitant]
     Active Substance: ISOSORBIDE
  5. TRAMADOL 50 MG 2 DAILY [Concomitant]
  6. ASPIRIN 81 MG  1 DAILY [Concomitant]
  7. METOPROLOL 50 MG 2 DAILY [Concomitant]
  8. FERROUS SULFATE 65 MG (325MG) [Concomitant]
  9. AMOXICILLIN/CLAVULANATE [Suspect]
     Active Substance: AMOXICILLIN\CLAVULANATE POTASSIUM
     Indication: BACTERIAL INFECTION
     Dosage: ?          QUANTITY:1 TABLET;?
     Route: 048
     Dates: start: 20180709, end: 20180711
  10. GABAPENTIN 300 MG 2 DAILY [Concomitant]
  11. TAMSULOSIN 0.4 MG 2 DAILY [Concomitant]
  12. HYDROCODONE/ACETAMINOPHEN 10/325 2 DAILY [Concomitant]
  13. ZYRTEC 10 MG 1 DAILY [Concomitant]
  14. BACLOFEN 10 MG 2 DAILY [Concomitant]
  15. GLUCOSAMINE/CHONDROITIN TRIPLE STRENGTH [Concomitant]

REACTIONS (6)
  - Coordination abnormal [None]
  - Hypertension [None]
  - Dysstasia [None]
  - Gait disturbance [None]
  - Cerebrovascular accident [None]
  - Balance disorder [None]

NARRATIVE: CASE EVENT DATE: 20180711
